FAERS Safety Report 12882975 (Version 1)
Quarter: 2016Q4

REPORT INFORMATION
  Report Type: Spontaneous
  Country: US (occurrence: US)
  Receive Date: 20161025
  Receipt Date: 20161025
  Transmission Date: 20170207
  Serious: No
  Sender: FDA-Public Use
  Company Number: US-SA-2016SA056913

PATIENT
  Sex: Male

DRUGS (1)
  1. LUMIZYME [Suspect]
     Active Substance: ALGLUCOSIDASE ALFA
     Route: 041

REACTIONS (6)
  - Pyrexia [Recovering/Resolving]
  - Cough [Recovering/Resolving]
  - Gastrointestinal disorder [Recovering/Resolving]
  - Chills [Recovering/Resolving]
  - Influenza [Recovering/Resolving]
  - Nasal congestion [Recovering/Resolving]
